FAERS Safety Report 5018189-2 (Version None)
Quarter: 2006Q2

REPORT INFORMATION
  Report Type: 
  Country: None (occurrence: None)
  Receive Date: 20060530
  Receipt Date: 20060517
  Transmission Date: 20061013
  Serious: Yes (Death, Other)
  Sender: FDA-Public Use
  Company Number: 2006065520

PATIENT
  Age: 51 Year
  Sex: Male

DRUGS (6)
  1. VFEND [Suspect]
     Indication: BRONCHOPULMONARY ASPERGILLOSIS
     Dosage: 300 MG, INTRAVENOUS
     Route: 042
     Dates: start: 20051024, end: 20051024
  2. MINOCYCLINE HCL [Concomitant]
  3. GANCICLOVIR [Concomitant]
  4. MEROPEN (MEROPENEM) [Concomitant]
  5. ACYCLOVIR [Concomitant]
  6. BACTRIM [Concomitant]

REACTIONS (4)
  - CONDITION AGGRAVATED [None]
  - HEPATIC FUNCTION ABNORMAL [None]
  - INTERSTITIAL LUNG DISEASE [None]
  - SHOCK [None]
